FAERS Safety Report 8249058-2 (Version None)
Quarter: 2012Q1

REPORT INFORMATION
  Report Type: 
  Country: None (occurrence: None)
  Receive Date: 20120327
  Receipt Date: 20120315
  Transmission Date: 20120608
  Serious: Yes (Hospitalization)
  Sender: FDA-Public Use
  Company Number: AUR-APL-2012-01535

PATIENT
  Age: 38 Year
  Sex: Female

DRUGS (2)
  1. CEFUROXIME [Suspect]
     Indication: ENDOCARDITIS
  2. VANCOMYCIN [Suspect]
     Indication: ENDOCARDITIS

REACTIONS (2)
  - VASCULITIS NECROTISING [None]
  - LEUKOCYTOCLASTIC VASCULITIS [None]
